FAERS Safety Report 19200676 (Version 1)
Quarter: 2021Q2

REPORT INFORMATION
  Report Type: Spontaneous
  Country: CA (occurrence: CA)
  Receive Date: 20210430
  Receipt Date: 20210430
  Transmission Date: 20210717
  Serious: Yes (Life-Threatening)
  Sender: FDA-Public Use
  Company Number: CA-PFIZER INC-2021469820

PATIENT

DRUGS (2)
  1. EFFEXOR [Suspect]
     Active Substance: VENLAFAXINE HYDROCHLORIDE
     Indication: DEPRESSION
     Dosage: UNK
     Route: 048
  2. AZITHROMYCIN ANHYDROUS. [Concomitant]
     Active Substance: AZITHROMYCIN ANHYDROUS
     Dosage: UNK

REACTIONS (16)
  - Nausea [Unknown]
  - Tinnitus [Unknown]
  - Gingival recession [Unknown]
  - Homicidal ideation [Unknown]
  - Weight increased [Unknown]
  - Dissociative disorder [Unknown]
  - Fibromyalgia [Unknown]
  - Apathy [Unknown]
  - Decreased appetite [Unknown]
  - Mental fatigue [Unknown]
  - Paraesthesia [Unknown]
  - Hormone level abnormal [Unknown]
  - Gingival bleeding [Unknown]
  - Irritable bowel syndrome [Unknown]
  - Anxiety [Unknown]
  - Arthralgia [Unknown]
